FAERS Safety Report 4870795-1 (Version None)
Quarter: 2006Q1

REPORT INFORMATION
  Report Type: 
  Country: None (occurrence: None)
  Receive Date: 20060103
  Receipt Date: 20050930
  Transmission Date: 20060701
  Serious: Yes (Death, Hospitalization, Other)
  Sender: FDA-Public Use
  Company Number: US-MERCK-0510USA01926

PATIENT
  Age: 62 Year
  Sex: Female
  Weight: 143 kg

DRUGS (27)
  1. VIOXX [Suspect]
     Indication: OSTEOARTHRITIS
     Route: 048
     Dates: start: 20000510, end: 20020530
  2. VIOXX [Suspect]
     Route: 048
     Dates: start: 19990713, end: 19990917
  3. DIPHENOXYLATE [Concomitant]
     Route: 065
  4. HUMULIN [Concomitant]
     Route: 065
  5. CHOLESTYRAMINE RESIN [Concomitant]
     Route: 065
  6. K-DUR 10 [Concomitant]
     Route: 065
  7. FUROSEMIDE [Concomitant]
     Route: 065
  8. NITROGLYCERIN [Concomitant]
     Route: 065
  9. SUCRALFATE [Concomitant]
     Route: 065
  10. MECLIZINE [Concomitant]
     Route: 065
  11. ACCUPRIL [Concomitant]
     Route: 065
  12. DYFLEX G [Concomitant]
     Route: 065
  13. AMOXICILLIN [Concomitant]
     Route: 065
  14. LEVAQUIN [Concomitant]
     Route: 065
  15. LANOXIN [Concomitant]
     Route: 065
  16. DILTIAZEM MALATE [Concomitant]
     Route: 065
  17. COREG [Concomitant]
     Route: 065
  18. ASPIRIN [Concomitant]
     Route: 065
  19. ACTOS [Concomitant]
     Route: 065
  20. LANTUS [Concomitant]
     Route: 065
  21. ISOSORBIDE [Concomitant]
     Route: 065
  22. PREVACID [Concomitant]
     Route: 065
  23. CARTIA (ASPIRIN) [Concomitant]
     Route: 065
  24. POTASSIUM CHLORIDE [Concomitant]
     Route: 065
  25. SEPTRA [Concomitant]
     Route: 065
  26. CIPRO [Concomitant]
     Route: 065
  27. ATENOLOL [Concomitant]
     Route: 065

REACTIONS (32)
  - ABDOMINAL PAIN [None]
  - ACUTE MYELOID LEUKAEMIA [None]
  - ACUTE MYOCARDIAL INFARCTION [None]
  - ANAEMIA [None]
  - ARTERIOSCLEROSIS [None]
  - ASTHENIA [None]
  - CARDIAC FAILURE CONGESTIVE [None]
  - CELLULITIS [None]
  - CEREBROVASCULAR ACCIDENT [None]
  - CHOLECYSTITIS [None]
  - CHOLELITHIASIS [None]
  - CORONARY ARTERY DISEASE [None]
  - DEATH [None]
  - DECUBITUS ULCER [None]
  - DEHYDRATION [None]
  - DYSPNOEA [None]
  - ENTEROCOCCAL INFECTION [None]
  - FALL [None]
  - HAEMATOCRIT DECREASED [None]
  - HYPOALBUMINAEMIA [None]
  - MICROCYTIC ANAEMIA [None]
  - NOCTURIA [None]
  - ORTHOPNOEA [None]
  - OSTEOMYELITIS [None]
  - POLLAKIURIA [None]
  - PSEUDOMONAS INFECTION [None]
  - RENAL FAILURE [None]
  - RENAL FAILURE CHRONIC [None]
  - SKIN ULCER [None]
  - ULCER [None]
  - URINARY TRACT INFECTION [None]
  - VENTRICULAR DYSFUNCTION [None]
